FAERS Safety Report 7065128-9 (Version None)
Quarter: 2010Q4

REPORT INFORMATION
  Report Type: 
  Country: None (occurrence: None)
  Receive Date: 20101027
  Receipt Date: 20101018
  Transmission Date: 20110411
  Serious: Yes (Hospitalization, Disabling)
  Sender: FDA-Public Use
  Company Number: NL-ACTELION-A-CH2009-26109

PATIENT
  Sex: Male
  Weight: 57.5 kg

DRUGS (2)
  1. MIGLUSTAT CAPSULE 100 MG EU [Suspect]
     Indication: LIPIDOSIS
     Dosage: 200 MG, TID
     Route: 048
     Dates: end: 20090622
  2. MIGLUSTAT CAPSULE 100 MG EU [Suspect]
     Dosage: 100 MG, TID
     Route: 048
     Dates: start: 20080908

REACTIONS (6)
  - DEHYDRATION [None]
  - DIARRHOEA [None]
  - DISEASE PROGRESSION [None]
  - DRUG INEFFECTIVE FOR UNAPPROVED INDICATION [None]
  - MUSCULAR WEAKNESS [None]
  - WHEELCHAIR USER [None]
